FAERS Safety Report 13844950 (Version 1)
Quarter: 2017Q3

REPORT INFORMATION
  Report Type: Spontaneous
  Country: IN (occurrence: IN)
  Receive Date: 20170808
  Receipt Date: 20170808
  Transmission Date: 20171127
  Serious: Yes (Other)
  Sender: FDA-Public Use
  Company Number: PHHY2017IN115401

PATIENT
  Age: 48 Year
  Sex: Female

DRUGS (1)
  1. VIGAMOX [Suspect]
     Active Substance: MOXIFLOXACIN HYDROCHLORIDE
     Indication: PRODUCT USED FOR UNKNOWN INDICATION
     Dosage: UNK
     Route: 047

REACTIONS (8)
  - Macule [Recovered/Resolved]
  - Stevens-Johnson syndrome [Recovered/Resolved]
  - Ocular hyperaemia [Recovered/Resolved]
  - Mucosal erosion [Recovered/Resolved]
  - Skin lesion [Recovered/Resolved]
  - Pain of skin [Recovered/Resolved]
  - Corneal lesion [Recovered/Resolved]
  - Erythema [Recovered/Resolved]
